FAERS Safety Report 6814966-3 (Version None)
Quarter: 2010Q3

REPORT INFORMATION
  Report Type: 
  Country: None (occurrence: None)
  Receive Date: 20100702
  Receipt Date: 20100628
  Transmission Date: 20110219
  Serious: Yes (Hospitalization)
  Sender: FDA-Public Use
  Company Number: CA-ROCHE-712336

PATIENT
  Sex: Male
  Weight: 90 kg

DRUGS (8)
  1. BEVACIZUMAB [Suspect]
     Dosage: B3379(100 MG VIAL), B5028 (400 MG VIAL)
     Route: 042
     Dates: start: 20100518
  2. CAPECITABINE [Suspect]
     Dosage: BATCH LOT: COMMERCIAL SUPPLY. TEMPORARILY INTERRUPTED.
     Route: 048
     Dates: start: 20100519, end: 20100617
  3. NITRO-DUR [Concomitant]
     Dates: start: 20040401
  4. ASPIRIN [Concomitant]
     Dates: start: 20040401
  5. RAMIPRIL [Concomitant]
     Dates: start: 20040401
  6. OXAZEPAM [Concomitant]
     Dates: start: 20070101
  7. CRESTOR [Concomitant]
     Dates: start: 20040401
  8. COLACE [Concomitant]
     Dates: start: 20100420

REACTIONS (1)
  - INTESTINAL OBSTRUCTION [None]
